FAERS Safety Report 6498482-7 (Version None)
Quarter: 2009Q4

REPORT INFORMATION
  Report Type: 
  Country: None (occurrence: None)
  Receive Date: 20091127
  Receipt Date: 20090203
  Transmission Date: 20100525
  Serious: Yes (Other)
  Sender: FDA-Public Use
  Company Number: 283803

PATIENT
  Age: 63 Year
  Sex: Male

DRUGS (8)
  1. NOVOLOG [Suspect]
     Indication: TYPE 2 DIABETES MELLITUS
     Dosage: 9IU, QD; 3 IU LUNCH AND 6 IU DINNER, SUBCUTANEOUS : 22IU AT BEDTIME, SUBCUTANEOUS
     Route: 058
     Dates: start: 20080701, end: 20080701
  2. LANTUS [Suspect]
     Indication: TYPE 2 DIABETES MELLITUS
     Dosage: 22 IU, QD AT BEDTIME, SUBCUTANEOUS
     Route: 058
  3. ASPIRIN [Concomitant]
  4. TENORMIN [Concomitant]
  5. ACTOS [Concomitant]
  6. LIPITOR [Concomitant]
  7. PROSCAR [Concomitant]
  8. CARDURA [Concomitant]

REACTIONS (2)
  - BLOOD GLUCOSE DECREASED [None]
  - WRONG DRUG ADMINISTERED [None]
